FAERS Safety Report 9691811 (Version 1)
Quarter: 2013Q4

REPORT INFORMATION
  Report Type: Spontaneous
  Country: US (occurrence: US)
  Receive Date: 20131115
  Receipt Date: 20131115
  Transmission Date: 20140711
  Serious: No
  Sender: FDA-Public Use
  Company Number: US-TEVA-443628USA

PATIENT
  Age: 50 Year
  Sex: Female
  Weight: 79.45 kg

DRUGS (8)
  1. NUVIGIL [Suspect]
     Indication: SLEEP APNOEA SYNDROME
  2. PAXIL [Concomitant]
     Indication: DEPRESSION
     Dosage: 60 MILLIGRAM DAILY;
  3. PAXIL [Concomitant]
     Indication: ANXIETY
  4. WELLBUTRIN [Concomitant]
     Indication: DEPRESSION
     Dosage: 500 MILLIGRAM DAILY;
  5. WELLBUTRIN [Concomitant]
     Indication: ANXIETY
  6. LISINOPRIL [Concomitant]
     Indication: BLOOD PRESSURE ABNORMAL
     Dosage: 10 MILLIGRAM DAILY;
  7. ADDERALL [Concomitant]
     Indication: SLEEP DISORDER
  8. SUBOXONE [Concomitant]
     Indication: DRUG DEPENDENCE

REACTIONS (3)
  - Sleep disorder [Not Recovered/Not Resolved]
  - Fall [Not Recovered/Not Resolved]
  - Confusional state [Not Recovered/Not Resolved]
